FAERS Safety Report 4328162-5 (Version None)
Quarter: 2004Q1

REPORT INFORMATION
  Report Type: 
  Country: None (occurrence: None)
  Receive Date: 20040325
  Receipt Date: 20040310
  Transmission Date: 20041129
  Serious: Yes (Hospitalization, Other)
  Sender: FDA-Public Use
  Company Number: 701357

PATIENT
  Age: 55 Year
  Sex: Male

DRUGS (1)
  1. AMEVIVE [Suspect]
     Indication: PSORIASIS
     Dosage: 15 MG QW IM
     Route: 030
     Dates: start: 20030926, end: 20031215

REACTIONS (3)
  - HERPES ZOSTER [None]
  - POST HERPETIC NEURALGIA [None]
  - VARICELLA [None]
